FAERS Safety Report 4646016-1 (Version None)
Quarter: 2005Q2

REPORT INFORMATION
  Report Type: 
  Country: None (occurrence: None)
  Receive Date: 20050425
  Receipt Date: 20050407
  Transmission Date: 20051028
  Serious: Yes (Other)
  Sender: FDA-Public Use
  Company Number: L05-LKA-01421-01

PATIENT
  Age: 65 Year
  Sex: Male

DRUGS (1)
  1. DILTIAZEM [Suspect]
     Indication: MYOCARDIAL ISCHAEMIA

REACTIONS (1)
  - EATON-LAMBERT SYNDROME [None]
